FAERS Safety Report 7725836-0 (Version None)
Quarter: 2011Q3

REPORT INFORMATION
  Report Type: 
  Country: None (occurrence: None)
  Receive Date: 20110902
  Receipt Date: 20110830
  Transmission Date: 20111222
  Serious: Yes (Hospitalization)
  Sender: FDA-Public Use
  Company Number: US-ROXANE LABORATORIES, INC.-2011-RO-01200RO

PATIENT
  Age: 68 Year
  Sex: Female

DRUGS (15)
  1. DEXAMETHASONE [Suspect]
     Dosage: 8 MG
     Route: 048
     Dates: start: 20110705
  2. LEVOTHYROXINE SODIUM [Concomitant]
     Dosage: 100 MG
     Route: 048
  3. OXYCONTIN [Concomitant]
     Dosage: 40 MG
     Route: 048
     Dates: start: 20110726
  4. OMEPRAZOLE [Concomitant]
     Dosage: 20 MG
     Route: 048
  5. PROCHLORPERAZINE [Concomitant]
     Dosage: 10 MG
     Route: 048
  6. ALBUTEROL SULFATE AUTOHALER [Concomitant]
     Route: 055
     Dates: start: 20110807
  7. LACTULOSE [Concomitant]
     Route: 048
     Dates: start: 20110705
  8. COLACE [Concomitant]
     Dosage: 100 MG
     Route: 048
  9. FOLIC ACID [Concomitant]
     Dosage: 1 MG
     Route: 048
  10. VICOPROFEN [Concomitant]
     Route: 048
  11. ONDANSETRON [Concomitant]
     Route: 048
  12. STUDY DRUG [Suspect]
     Indication: NON-SMALL CELL LUNG CANCER
     Dosage: 500 MG
     Route: 048
     Dates: start: 20110727
  13. ATORVASTATIN [Concomitant]
     Dosage: 10 MG
     Route: 048
  14. CLONAZEPAM [Concomitant]
     Dosage: 0.5 MG
     Route: 048
     Dates: start: 20110807
  15. CALCIUM CARBONATE [Concomitant]
     Dosage: 1000 MG
     Route: 048

REACTIONS (1)
  - DYSPNOEA [None]
